FAERS Safety Report 26028615 (Version 1)
Quarter: 2025Q4

REPORT INFORMATION
  Report Type: Spontaneous
  Country: CN (occurrence: CN)
  Receive Date: 20251111
  Receipt Date: 20251111
  Transmission Date: 20260117
  Serious: Yes (Hospitalization)
  Sender: TAKEDA
  Company Number: CN-JNJFOC-20251040520

PATIENT
  Age: 78 Year
  Sex: Male

DRUGS (11)
  1. VELCADE [Suspect]
     Active Substance: BORTEZOMIB
     Indication: Plasma cell leukaemia
     Dosage: 2 MILLIGRAM, QD
     Dates: start: 20250927, end: 20250927
  2. VELCADE [Suspect]
     Active Substance: BORTEZOMIB
     Dosage: 2 MILLIGRAM, QD
     Dates: start: 20251004, end: 20251004
  3. VELCADE [Suspect]
     Active Substance: BORTEZOMIB
     Dosage: 2 MILLIGRAM, QD
     Dates: start: 20251007, end: 20251007
  4. DARATUMUMAB\HYALURONIDASE-FIHJ [Suspect]
     Active Substance: DARATUMUMAB\HYALURONIDASE-FIHJ
     Indication: Plasma cell leukaemia
     Dosage: 1800 MILLIGRAM, QD
     Dates: start: 20250927, end: 20250927
  5. DARATUMUMAB\HYALURONIDASE-FIHJ [Suspect]
     Active Substance: DARATUMUMAB\HYALURONIDASE-FIHJ
     Dosage: 1800 MILLIGRAM, QD
     Dates: start: 20251004, end: 20251004
  6. DARATUMUMAB\HYALURONIDASE-FIHJ [Suspect]
     Active Substance: DARATUMUMAB\HYALURONIDASE-FIHJ
     Dosage: 1800 MILLIGRAM, QD
     Dates: start: 20251012, end: 20251012
  7. DEXAMETHASONE [Suspect]
     Active Substance: DEXAMETHASONE
     Indication: Plasma cell leukaemia
     Dosage: 10 MILLIGRAM
     Dates: start: 20250927, end: 20250927
  8. CYCLOPHOSPHAMIDE [Suspect]
     Active Substance: CYCLOPHOSPHAMIDE
     Indication: Plasma cell leukaemia
     Dosage: 0.3 MILLIGRAM, QD
     Dates: start: 20250927, end: 20250927
  9. CYCLOPHOSPHAMIDE [Suspect]
     Active Substance: CYCLOPHOSPHAMIDE
     Dosage: 0.3 MILLIGRAM, QD
     Dates: start: 20250930, end: 20250930
  10. CYCLOPHOSPHAMIDE [Suspect]
     Active Substance: CYCLOPHOSPHAMIDE
     Dosage: 0.2 MILLIGRAM, QD
     Dates: start: 20251004, end: 20251004
  11. CYCLOPHOSPHAMIDE [Suspect]
     Active Substance: CYCLOPHOSPHAMIDE
     Dosage: 0.2 MILLIGRAM, QD
     Dates: start: 20251007, end: 20251007

REACTIONS (2)
  - Haemorrhage [Recovering/Resolving]
  - Platelet count decreased [Recovering/Resolving]

NARRATIVE: CASE EVENT DATE: 20251005
